FAERS Safety Report 21217134 (Version 1)
Quarter: 2022Q3

REPORT INFORMATION
  Report Type: Spontaneous
  Country: US (occurrence: None)
  Receive Date: 20220816
  Receipt Date: 20220816
  Transmission Date: 20221027
  Serious: No
  Sender: FDA-Public Use
  Company Number: US-ROCHE-3054595

PATIENT
  Sex: Male

DRUGS (1)
  1. ALECENSA [Suspect]
     Active Substance: ALECTINIB HYDROCHLORIDE
     Indication: Metastases to meninges
     Dosage: DOSE INCREASE FROM 600MG TWICE DAILY TO 900MG TWICE DAILY
     Route: 048
     Dates: start: 202012

REACTIONS (2)
  - Off label use [Unknown]
  - No adverse event [Unknown]
